FAERS Safety Report 16657936 (Version 1)
Quarter: 2019Q3

REPORT INFORMATION
  Report Type: Spontaneous
  Country: US (occurrence: US)
  Receive Date: 20190801
  Receipt Date: 20190801
  Transmission Date: 20191004
  Serious: Yes (Death)
  Sender: FDA-Public Use
  Company Number: US-PFIZER INC-2019321704

PATIENT
  Age: 7 Week
  Sex: Male

DRUGS (21)
  1. DOPAMINE HCL [Suspect]
     Active Substance: DOPAMINE HYDROCHLORIDE
     Indication: CARDIAC FAILURE
     Dosage: UNK
  2. DIPHENHYDRAMINE. [Concomitant]
     Active Substance: DIPHENHYDRAMINE
     Indication: DIFFUSE CUTANEOUS MASTOCYTOSIS
  3. CROMOLYN [Concomitant]
     Active Substance: CROMOLYN
     Indication: DIFFUSE CUTANEOUS MASTOCYTOSIS
     Dosage: UNK
     Route: 061
  4. CALCITRIOL. [Concomitant]
     Active Substance: CALCITRIOL
     Indication: BLOOD PARATHYROID HORMONE DECREASED
     Dosage: UNK
  5. NOREPINEPHRINE BITARTRATE. [Suspect]
     Active Substance: NOREPINEPHRINE BITARTRATE
     Indication: CARDIAC FAILURE
     Dosage: UNK
  6. NITRIC OXIDE. [Concomitant]
     Active Substance: NITRIC OXIDE
     Indication: PULMONARY HYPERTENSION
     Dosage: UNK
     Route: 055
  7. DIPHENHYDRAMINE. [Concomitant]
     Active Substance: DIPHENHYDRAMINE
     Indication: HEPATOSPLENOMEGALY
     Dosage: UNK
  8. CROMOLYN [Concomitant]
     Active Substance: CROMOLYN
     Indication: DIFFUSE CUTANEOUS MASTOCYTOSIS
     Dosage: UNK
  9. EPINEPHRINE. [Suspect]
     Active Substance: EPINEPHRINE
     Indication: CARDIAC FAILURE
     Dosage: UNK
     Route: 041
  10. METHYLPREDNISOLONE. [Concomitant]
     Active Substance: METHYLPREDNISOLONE
     Indication: HEPATOSPLENOMEGALY
     Dosage: UNK
  11. RANITIDINE. [Concomitant]
     Active Substance: RANITIDINE
     Dosage: UNK
     Route: 061
  12. IMATINIB. [Concomitant]
     Active Substance: IMATINIB MESYLATE
     Indication: DIFFUSE CUTANEOUS MASTOCYTOSIS
     Dosage: UNK
  13. METHYLPREDNISOLONE. [Concomitant]
     Active Substance: METHYLPREDNISOLONE
     Indication: DIFFUSE CUTANEOUS MASTOCYTOSIS
     Dosage: UNK (SWITCHED TO HIGH DOSE)
  14. DASATINIB. [Concomitant]
     Active Substance: DASATINIB
     Indication: HEPATOSPLENOMEGALY
     Dosage: UNK
  15. HYDROXYUREA. [Concomitant]
     Active Substance: HYDROXYUREA
     Indication: LEUKOCYTOSIS
     Dosage: UNK
  16. CLADRIBINE. [Concomitant]
     Active Substance: CLADRIBINE
     Indication: HEPATOSPLENOMEGALY
     Dosage: UNK
  17. CALCIUM [Concomitant]
     Active Substance: CALCIUM
     Indication: MINERAL SUPPLEMENTATION
     Dosage: UNK, (ENTERAL)
  18. MILRINONE [Suspect]
     Active Substance: MILRINONE
     Indication: CARDIAC FAILURE
     Dosage: UNK
  19. MAGNESIUM [Concomitant]
     Active Substance: MAGNESIUM
     Indication: MINERAL SUPPLEMENTATION
     Dosage: UNK, (ENTERAL)
  20. VINCRISTINE [Concomitant]
     Active Substance: VINCRISTINE
     Indication: HEPATOSPLENOMEGALY
     Dosage: UNK
  21. VITAMIN D [COLECALCIFEROL] [Concomitant]
     Active Substance: CHOLECALCIFEROL
     Indication: BLOOD PARATHYROID HORMONE DECREASED
     Dosage: UNK

REACTIONS (3)
  - Drug ineffective [Fatal]
  - Hypotension [Fatal]
  - Hypoxia [Fatal]
